FAERS Safety Report 7115935-9 (Version None)
Quarter: 2010Q4

REPORT INFORMATION
  Report Type: 
  Country: None (occurrence: None)
  Receive Date: 20101122
  Receipt Date: 20101109
  Transmission Date: 20110411
  Serious: Yes (Hospitalization)
  Sender: FDA-Public Use
  Company Number: US-BAYER-201014733NA

PATIENT
  Age: 25 Year
  Sex: Female
  Weight: 132 kg

DRUGS (3)
  1. YAZ [Suspect]
     Indication: ORAL CONTRACEPTION
     Route: 048
     Dates: start: 20070101, end: 20080101
  2. YASMIN [Suspect]
     Indication: ORAL CONTRACEPTION
     Route: 048
  3. OCELLA [Suspect]
     Indication: ORAL CONTRACEPTION
     Route: 048

REACTIONS (8)
  - ABDOMINAL PAIN [None]
  - BLOOD OSMOLARITY DECREASED [None]
  - CHOLECYSTITIS CHRONIC [None]
  - CHOLELITHIASIS [None]
  - GALLBLADDER CHOLESTEROLOSIS [None]
  - HYPOKALAEMIA [None]
  - INJURY [None]
  - PANCREATITIS [None]
